FAERS Safety Report 15466824 (Version 1)
Quarter: 2018Q4

REPORT INFORMATION
  Report Type: Report from Study
  Country: DE (occurrence: DE)
  Receive Date: 20181005
  Receipt Date: 20181005
  Transmission Date: 20190204
  Serious: Yes (Other)
  Sender: FDA-Public Use
  Company Number: DE-ROCHE-2193075

PATIENT
  Sex: Female
  Weight: 65 kg

DRUGS (4)
  1. RANIBIZUMAB. [Suspect]
     Active Substance: RANIBIZUMAB
     Route: 031
     Dates: start: 20151015
  2. RANIBIZUMAB. [Suspect]
     Active Substance: RANIBIZUMAB
     Route: 031
     Dates: start: 201507
  3. RANIBIZUMAB. [Suspect]
     Active Substance: RANIBIZUMAB
     Route: 031
     Dates: start: 20160115
  4. RANIBIZUMAB. [Suspect]
     Active Substance: RANIBIZUMAB
     Indication: NEOVASCULAR AGE-RELATED MACULAR DEGENERATION
     Dosage: 0.5 MG, UNK
     Route: 031
     Dates: start: 201504

REACTIONS (2)
  - Retinal haemorrhage [Not Recovered/Not Resolved]
  - Disease recurrence [Not Recovered/Not Resolved]

NARRATIVE: CASE EVENT DATE: 20160707
